FAERS Safety Report 8756273 (Version 2)
Quarter: 2012Q4

REPORT INFORMATION
  Report Type: Spontaneous
  Country: AT (occurrence: None)
  Receive Date: 20120816
  Receipt Date: 20121011
  Transmission Date: 20130627
  Serious: Yes (Hospitalization, Other)
  Sender: FDA-Public Use
  Company Number: 201208012

PATIENT
  Age: 33 Year
  Sex: Male

DRUGS (1)
  1. XIAPEX [Suspect]
     Indication: DUPUYTREN^S CONTRACTURE
     Dosage: 1 in 1 D, Intralesional
     Dates: start: 2012, end: 2012

REACTIONS (2)
  - Tendon rupture [None]
  - Localised infection [None]
